FAERS Safety Report 21270952 (Version 1)
Quarter: 2022Q3

REPORT INFORMATION
  Report Type: Spontaneous
  Country: ES (occurrence: ES)
  Receive Date: 20220830
  Receipt Date: 20220830
  Transmission Date: 20221027
  Serious: Yes (Death, Life-Threatening, Hospitalization, Other)
  Sender: FDA-Public Use
  Company Number: ES-AMGEN-ESPSP2022145750

PATIENT

DRUGS (7)
  1. FILGRASTIM [Suspect]
     Active Substance: FILGRASTIM
     Indication: Neutropenia
     Route: 065
  2. LEUPROLIDE [Concomitant]
     Active Substance: LEUPROLIDE
     Dosage: 22.5 MILLIGRAM, Q3MO
  3. BICALUTAMIDE [Concomitant]
     Active Substance: BICALUTAMIDE
     Dosage: 50 MILLIGRAM, QD
     Route: 048
  4. DOCETAXEL [Concomitant]
     Active Substance: DOCETAXEL
     Dosage: 75 MILLIGRAM/SQ. METER, Q3WK
  5. PREDNISONE [Concomitant]
     Active Substance: PREDNISONE
     Dosage: 10 MILLIGRAM, QD
     Route: 048
  6. ABIRATERONE [Concomitant]
     Active Substance: ABIRATERONE
  7. ENZALUTAMIDE [Concomitant]
     Active Substance: ENZALUTAMIDE

REACTIONS (16)
  - Death [Fatal]
  - Febrile neutropenia [Fatal]
  - Septic shock [Fatal]
  - Toxicity to various agents [Unknown]
  - Neutropenia [Unknown]
  - Neuropathy peripheral [Unknown]
  - Oedema [Unknown]
  - Nail toxicity [Unknown]
  - Fatigue [Unknown]
  - Anaemia [Unknown]
  - Thrombocytopenia [Unknown]
  - Hypersensitivity [Unknown]
  - Diarrhoea [Unknown]
  - Hospitalisation [Unknown]
  - Acute kidney injury [Unknown]
  - Chronic kidney disease [Unknown]
